FAERS Safety Report 25705617 (Version 1)
Quarter: 2025Q3

REPORT INFORMATION
  Report Type: Spontaneous
  Country: US (occurrence: None)
  Receive Date: 20250819
  Receipt Date: 20250819
  Transmission Date: 20251020
  Serious: Yes (Life-Threatening, Hospitalization)
  Sender: FDA-CTU
  Company Number: None

PATIENT
  Age: 70 Year
  Sex: Female

DRUGS (2)
  1. INVEGA [Suspect]
     Active Substance: PALIPERIDONE
  2. INVEGA [Concomitant]
     Active Substance: PALIPERIDONE

REACTIONS (1)
  - Parkinsonism [None]

NARRATIVE: CASE EVENT DATE: 20241212
